FAERS Safety Report 10645676 (Version 1)
Quarter: 2014Q4

REPORT INFORMATION
  Report Type: Spontaneous
  Country: US (occurrence: US)
  Receive Date: 20141211
  Receipt Date: 20141211
  Transmission Date: 20150529
  Serious: Yes (Hospitalization)
  Sender: FDA-Public Use
  Company Number: CHPA2014US016241

PATIENT
  Sex: Female

DRUGS (1)
  1. TRIAMINIC NIGHT TIME COLD + COUGH [Suspect]
     Active Substance: DIPHENHYDRAMINE\PHENYLEPHRINE
     Indication: COUGH
     Route: 065

REACTIONS (1)
  - Heart rate increased [Unknown]
